FAERS Safety Report 5409463-6 (Version None)
Quarter: 2007Q3

REPORT INFORMATION
  Report Type: 
  Country: None (occurrence: None)
  Receive Date: 20070807
  Receipt Date: 20070723
  Transmission Date: 20080115
  Serious: Yes (Other)
  Sender: FDA-Public Use
  Company Number: SPV1-2007-01122

PATIENT
  Age: 13 Year
  Sex: Female
  Weight: 79.4 kg

DRUGS (7)
  1. DAYTRANA [Suspect]
     Indication: ATTENTION DEFICIT/HYPERACTIVITY DISORDER
     Dates: start: 20060101, end: 20070301
  2. TRILEPTAL [Concomitant]
  3. PEPCID /00706001/ [Concomitant]
  4. (FAMOTIDINE) TABLET [Concomitant]
  5. ALBUTEROL /00139501/ (SALBUTAMOL0 [Concomitant]
  6. STRATTERA [Concomitant]
  7. SEROQUEL /01270901/ (QUETIAPINE) [Concomitant]

REACTIONS (4)
  - APPLICATION SITE URTICARIA [None]
  - HYPERHIDROSIS [None]
  - LOSS OF CONSCIOUSNESS [None]
  - PHARMACEUTICAL PRODUCT COMPLAINT [None]
